FAERS Safety Report 5219515-1 (Version None)
Quarter: 2006Q4

REPORT INFORMATION
  Report Type: 
  Country: None (occurrence: None)
  Receive Date: 20061201
  Receipt Date: 20060705
  Transmission Date: 20070319
  Serious: No
  Sender: FDA-Public Use
  Company Number: 2006PV017011

PATIENT
  Age: 57 Year
  Sex: Female
  Weight: 97.5234 kg

DRUGS (3)
  1. BYETTA [Suspect]
     Indication: DIABETES MELLITUS NON-INSULIN-DEPENDENT
     Dosage: SEE IMAGE
     Route: 058
     Dates: start: 20060101, end: 20060101
  2. BYETTA [Suspect]
     Indication: DIABETES MELLITUS NON-INSULIN-DEPENDENT
     Dosage: SEE IMAGE
     Route: 058
     Dates: start: 20060101
  3. GLIPIZIDE [Concomitant]

REACTIONS (5)
  - COUGH [None]
  - DRY MOUTH [None]
  - DYSPHONIA [None]
  - INJECTION SITE HAEMORRHAGE [None]
  - NERVOUSNESS [None]
